FAERS Safety Report 7512135-5 (Version None)
Quarter: 2011Q2

REPORT INFORMATION
  Report Type: 
  Country: None (occurrence: None)
  Receive Date: 20110520
  Receipt Date: 20110505
  Transmission Date: 20111010
  Serious: Yes (Disabling)
  Sender: FDA-Public Use
  Company Number: 2011PV000024

PATIENT
  Sex: Male

DRUGS (2)
  1. DEPOCYT [Suspect]
     Indication: MENINGITIS
     Dosage: 50 MG; ;INTH
  2. DEXAMETHASONE [Concomitant]

REACTIONS (1)
  - CAUDA EQUINA SYNDROME [None]
